FAERS Safety Report 11643844 (Version 1)
Quarter: 2015Q4

REPORT INFORMATION
  Report Type: Spontaneous
  Country: US (occurrence: None)
  Receive Date: 20151019
  Receipt Date: 20151019
  Transmission Date: 20160304
  Serious: Yes (Life-Threatening, Disabling)
  Sender: FDA-Public Use
  Company Number: None

PATIENT
  Age: 35 Year
  Sex: Female
  Weight: 67.59 kg

DRUGS (7)
  1. PROAIR INHALER [Concomitant]
  2. VERAPAMIL [Concomitant]
     Active Substance: VERAPAMIL HYDROCHLORIDE
  3. PROZAC [Concomitant]
     Active Substance: FLUOXETINE HYDROCHLORIDE
  4. MAXZIDE [Concomitant]
     Active Substance: HYDROCHLOROTHIAZIDE\TRIAMTERENE
  5. NORETHINDRONE 5 MG BARR [Suspect]
     Active Substance: NORETHINDRONE
     Indication: ENDOMETRIOSIS
     Route: 048
     Dates: start: 20140602, end: 20140714
  6. CENTRUM WOMEN DAILY MULTIVITAMIN [Concomitant]
  7. FLONASE [Concomitant]
     Active Substance: FLUTICASONE PROPIONATE

REACTIONS (9)
  - Panic attack [None]
  - Pain [None]
  - Depression [None]
  - Suicidal ideation [None]
  - Self-injurious ideation [None]
  - Weight increased [None]
  - Endometriosis [None]
  - Fatigue [None]
  - Somnambulism [None]

NARRATIVE: CASE EVENT DATE: 20140714
